FAERS Safety Report 23033875 (Version 1)
Quarter: 2023Q4

REPORT INFORMATION
  Report Type: Spontaneous
  Country: US (occurrence: US)
  Receive Date: 20231005
  Receipt Date: 20231005
  Transmission Date: 20240110
  Serious: No
  Sender: FDA-Public Use
  Company Number: US-SANDOZ-SDZ2023US038189

PATIENT
  Sex: Female

DRUGS (1)
  1. RECLAST [Suspect]
     Active Substance: ZOLEDRONIC ACID
     Dosage: UNK
     Route: 065
     Dates: start: 20230811, end: 20230811

REACTIONS (8)
  - Balance disorder [Unknown]
  - Hypokinesia [Unknown]
  - Abdominal discomfort [Unknown]
  - Gait inability [Unknown]
  - Tremor [Unknown]
  - Headache [Unknown]
  - Dizziness [Unknown]
  - Myalgia [Unknown]
